FAERS Safety Report 12921336 (Version 6)
Quarter: 2018Q2

REPORT INFORMATION
  Report Type: Report from Study
  Country: FR (occurrence: FR)
  Receive Date: 20161108
  Receipt Date: 20180504
  Transmission Date: 20180711
  Serious: Yes (Hospitalization)
  Sender: FDA-Public Use
  Company Number: FR-INCYTE CORPORATION-2016IN007025

PATIENT

DRUGS (1)
  1. JAKAVI [Suspect]
     Active Substance: RUXOLITINIB
     Indication: MYELOFIBROSIS
     Dosage: 15 MG, BID
     Route: 048
     Dates: start: 20130410

REACTIONS (7)
  - Biliary tract disorder [Recovered/Resolved]
  - Biliary tract disorder [Recovering/Resolving]
  - Biliary tract disorder [Recovered/Resolved]
  - Biliary tract disorder [Recovered/Resolved]
  - Rectal haemorrhage [Not Recovered/Not Resolved]
  - Biliary tract disorder [Recovered/Resolved]
  - Biliary tract disorder [Recovered/Resolved]

NARRATIVE: CASE EVENT DATE: 20140429
